FAERS Safety Report 5637230-7 (Version None)
Quarter: 2008Q1

REPORT INFORMATION
  Report Type: 
  Country: None (occurrence: None)
  Receive Date: 20080225
  Receipt Date: 20070223
  Transmission Date: 20080703
  Serious: No
  Sender: FDA-Public Use
  Company Number: US-BRISTOL-MYERS SQUIBB COMPANY-13691449

PATIENT
  Age: 66 Year
  Sex: Female
  Weight: 91 kg

DRUGS (7)
  1. KENALOG [Suspect]
     Indication: BURSITIS
     Dates: start: 20070213
  2. CRESTOR [Concomitant]
     Dates: start: 20070213
  3. LISINOPRIL [Concomitant]
  4. PREMARIN [Concomitant]
  5. ASPIRIN [Concomitant]
  6. AMBIEN [Concomitant]
  7. ADVIL [Concomitant]

REACTIONS (1)
  - BURNING SENSATION [None]
